FAERS Safety Report 9506242 (Version 1)
Quarter: 2013Q1

REPORT INFORMATION
  Report Type: Spontaneous
  Country: US (occurrence: None)
  Receive Date: 20130301
  Receipt Date: 20130301
  Transmission Date: 20140127
  Serious: Yes (Other)
  Sender: FDA-Public Use
  Company Number: RB-31321-2011

PATIENT
  Sex: Female

DRUGS (6)
  1. SUBOXONE 8 MG [Suspect]
     Indication: DRUG DEPENDENCE
     Route: 060
     Dates: start: 20091101, end: 20110807
  2. BUPRENORPHINE [Suspect]
     Indication: DRUG DEPENDENCE
     Route: 060
     Dates: start: 20110808
  3. LEVOTHYROXINE [Concomitant]
  4. CALCIUM [Concomitant]
  5. PRENATAL VITAMINS [Concomitant]
  6. VITAMIN D3 [Concomitant]

REACTIONS (1)
  - Blood pressure increased [None]
